FAERS Safety Report 16325802 (Version 1)
Quarter: 2019Q2

REPORT INFORMATION
  Report Type: Spontaneous
  Country: US (occurrence: US)
  Receive Date: 20190517
  Receipt Date: 20190517
  Transmission Date: 20190711
  Serious: No
  Sender: FDA-Public Use
  Company Number: US-ELI_LILLY_AND_COMPANY-US201905003128

PATIENT
  Sex: Female

DRUGS (2)
  1. EMGALITY [Suspect]
     Active Substance: GALCANEZUMAB-GNLM
     Indication: PRODUCT USED FOR UNKNOWN INDICATION
     Dosage: 240 MG, SINGLE
     Route: 065
     Dates: start: 20190402
  2. EMGALITY [Suspect]
     Active Substance: GALCANEZUMAB-GNLM
     Dosage: UNK UNK, MONTHLY (1/M)
     Route: 065
     Dates: start: 20190502

REACTIONS (12)
  - Injection site papule [Unknown]
  - Injection site pruritus [Unknown]
  - Injection site warmth [Unknown]
  - Malaise [Unknown]
  - Pyrexia [Recovering/Resolving]
  - Arthralgia [Unknown]
  - Pain [Unknown]
  - Headache [Unknown]
  - Injection site urticaria [Unknown]
  - Diarrhoea [Unknown]
  - Feeling abnormal [Unknown]
  - Influenza like illness [Unknown]

NARRATIVE: CASE EVENT DATE: 20190503
